FAERS Safety Report 9729472 (Version 1)
Quarter: 2013Q4

REPORT INFORMATION
  Report Type: Spontaneous
  Country: US (occurrence: US)
  Receive Date: 20131204
  Receipt Date: 20131204
  Transmission Date: 20140711
  Serious: No
  Sender: FDA-Public Use
  Company Number: US-GILEAD-2009-0021581

PATIENT
  Sex: Male

DRUGS (11)
  1. LETAIRIS [Suspect]
     Indication: PULMONARY ARTERIAL HYPERTENSION
     Route: 048
  2. LASIX [Concomitant]
  3. TRICOR [Concomitant]
  4. VERAPAMIL [Concomitant]
  5. DIOVAN [Concomitant]
  6. LIPITOR [Concomitant]
  7. DOXAZOSIN [Concomitant]
  8. DAPSONE [Concomitant]
  9. ALTACE [Concomitant]
  10. ALTARYL [Concomitant]
  11. ALLEGRA [Concomitant]

REACTIONS (1)
  - Fluid retention [Recovering/Resolving]
